FAERS Safety Report 7342215-9 (Version None)
Quarter: 2011Q1

REPORT INFORMATION
  Report Type: 
  Country: None (occurrence: None)
  Receive Date: 20110310
  Receipt Date: 20110303
  Transmission Date: 20110831
  Serious: Yes (Other)
  Sender: FDA-Public Use
  Company Number: US-AMGEN-USASP2011012334

PATIENT

DRUGS (2)
  1. ANTINEOPLASTIC AGENTS [Concomitant]
  2. ARANESP [Suspect]
     Indication: ANAEMIA OF MALIGNANT DISEASE
     Dosage: UNK

REACTIONS (1)
  - NEOPLASM MALIGNANT [None]
